FAERS Safety Report 9319858 (Version 1)
Quarter: 2013Q2

REPORT INFORMATION
  Report Type: Report from Study
  Country: CA (occurrence: CA)
  Receive Date: 20130530
  Receipt Date: 20130530
  Transmission Date: 20140414
  Serious: Yes (Other)
  Sender: FDA-Public Use
  Company Number: CA-ABBOTT-13P-028-1095926-00

PATIENT
  Sex: Female

DRUGS (2)
  1. HUMIRA [Suspect]
     Indication: PSORIATIC ARTHROPATHY
     Route: 058
     Dates: start: 20090806, end: 20130412
  2. HUMIRA [Suspect]
     Dates: start: 20130512

REACTIONS (2)
  - Carpal tunnel syndrome [Unknown]
  - Injection site pain [Unknown]
